FAERS Safety Report 6271329-X (Version None)
Quarter: 2009Q3

REPORT INFORMATION
  Report Type: 
  Country: None (occurrence: None)
  Receive Date: 20090717
  Receipt Date: 20090707
  Transmission Date: 20100115
  Serious: Yes (Hospitalization)
  Sender: FDA-Public Use
  Company Number: US-KINGPHARMUSA00001-K200900800

PATIENT
  Age: 75 Year
  Sex: Female

DRUGS (16)
  1. ALTACE [Suspect]
     Dosage: 10 MG, QD
     Route: 048
     Dates: end: 20081106
  2. ALTACE [Suspect]
     Dosage: 5 MG, QD
     Route: 048
     Dates: start: 20081107
  3. LASIX [Suspect]
     Dosage: 60 MG, QD
     Route: 048
     Dates: end: 20081105
  4. LASIX [Suspect]
     Dosage: 40 MG, QD
     Route: 048
     Dates: start: 20081106
  5. STILNOX [Suspect]
     Dosage: 15 MG, QD
     Route: 048
  6. COLCHIMAX [Suspect]
     Indication: GOUT
     Dosage: 190.5 MG, QD
     Route: 048
     Dates: start: 20081031, end: 20081031
  7. COLCHIMAX [Suspect]
     Dosage: 127 MG, QD
     Route: 048
     Dates: start: 20081101, end: 20081101
  8. COLCHIMAX [Suspect]
     Dosage: 63.5 MG, QD
     Route: 048
     Dates: start: 20081102, end: 20081102
  9. TAHOR [Suspect]
     Dosage: 10 MG, QD
     Route: 048
  10. CARDENSIEL [Suspect]
     Dosage: 5 MG, QD
     Route: 048
  11. STABLON [Suspect]
     Dosage: 37.5 MG, QD
     Route: 048
  12. PULMICORT-100 [Suspect]
     Dosage: 2 U, QD
  13. SPIRIVA [Suspect]
     Dosage: 18 UG, QD
  14. COUMADIN [Suspect]
     Dosage: 4 MG, QD
     Route: 048
     Dates: end: 20081106
  15. COUMADIN [Suspect]
     Dosage: 2 MG, QD
     Route: 048
     Dates: start: 20081112
  16. DIFFU K [Suspect]
     Dosage: 600 MG, QD
     Route: 048
     Dates: end: 20081114

REACTIONS (12)
  - ANTICOAGULATION DRUG LEVEL ABOVE THERAPEUTIC [None]
  - DEHYDRATION [None]
  - DIARRHOEA [None]
  - DYSPEPSIA [None]
  - ERUCTATION [None]
  - FATIGUE [None]
  - FOOD INTOLERANCE [None]
  - GASTROINTESTINAL DISORDER [None]
  - NAUSEA [None]
  - RENAL FAILURE [None]
  - SKIN WRINKLING [None]
  - VOMITING [None]
